FAERS Safety Report 25891035 (Version 1)
Quarter: 2025Q4

REPORT INFORMATION
  Report Type: Spontaneous
  Country: US (occurrence: None)
  Receive Date: 20251007
  Receipt Date: 20251007
  Transmission Date: 20260118
  Serious: Yes (Other)
  Sender: FDA-CTU
  Company Number: None

PATIENT
  Age: 64 Year
  Sex: Male

DRUGS (1)
  1. ALYFTREK [Suspect]
     Active Substance: DEUTIVACAFTOR\TEZACAFTOR\VANZACAFTOR
     Dates: start: 20191106, end: 20250910

REACTIONS (5)
  - Diarrhoea [None]
  - Faeces pale [None]
  - Fatigue [None]
  - Illness [None]
  - Liver function test increased [None]

NARRATIVE: CASE EVENT DATE: 20250910
